FAERS Safety Report 12542641 (Version 1)
Quarter: 2016Q3

REPORT INFORMATION
  Report Type: Spontaneous
  Country: US (occurrence: US)
  Receive Date: 20160709
  Receipt Date: 20160709
  Transmission Date: 20161109
  Serious: Yes (Death, Other)
  Sender: FDA-Public Use
  Company Number: US-CIPLA LTD.-2016US08948

PATIENT

DRUGS (3)
  1. PANOBINOSTAT [Suspect]
     Active Substance: PANOBINOSTAT
     Indication: NEUROENDOCRINE CARCINOMA
     Dosage: 10 MG, THREE TIMES PER WEEK, GIVEN FOR 2 WEEKS, OUT OF A 3-WEEK CYCLE
     Route: 048
  2. CARBOPLATIN. [Suspect]
     Active Substance: CARBOPLATIN
     Indication: NEUROENDOCRINE CARCINOMA
     Dosage: AUC OF 5 ON DAY 1, EVERY 3 WEEKS
     Route: 065
  3. ETOPOSIDE. [Suspect]
     Active Substance: ETOPOSIDE
     Indication: NEUROENDOCRINE CARCINOMA
     Dosage: 100 MG/M2, ON DAYS 1, 2 AND 3, EVERY 3 WEEKS
     Route: 065

REACTIONS (4)
  - Neutropenia [Unknown]
  - Febrile neutropenia [Unknown]
  - Disease progression [Fatal]
  - Thrombocytopenia [Unknown]
